FAERS Safety Report 21766363 (Version 1)
Quarter: 2022Q4

REPORT INFORMATION
  Report Type: Spontaneous
  Country: US (occurrence: None)
  Receive Date: 20221221
  Receipt Date: 20221221
  Transmission Date: 20230113
  Serious: Yes (Disabling, Other)
  Sender: FDA-Public Use
  Company Number: None

PATIENT
  Age: 33 Year
  Sex: Female
  Weight: 99.79 kg

DRUGS (3)
  1. PARAGARD T 380A [Suspect]
     Active Substance: COPPER
  2. UNSPECIFIED INGREDIENT [Suspect]
     Active Substance: UNSPECIFIED INGREDIENT
  3. Psychotherapeutic drugs (Adderall, Wellbutrin) [Concomitant]

REACTIONS (3)
  - Pregnancy with contraceptive device [None]
  - Illness [None]
  - Abortion induced [None]

NARRATIVE: CASE EVENT DATE: 20221122
